FAERS Safety Report 6407252-7 (Version None)
Quarter: 2009Q4

REPORT INFORMATION
  Report Type: 
  Country: None (occurrence: None)
  Receive Date: 20091020
  Receipt Date: 20091007
  Transmission Date: 20100525
  Serious: Yes (Other)
  Sender: FDA-Public Use
  Company Number: PHHY2009GB28822

PATIENT
  Sex: Male

DRUGS (2)
  1. CLOZARIL [Suspect]
     Indication: SCHIZOPHRENIA
     Dosage: 100 MG MORNING AND 100 MG NIGHT
     Route: 048
     Dates: start: 20071018
  2. CLOZARIL [Suspect]
     Dosage: 400 MG/DAY
     Dates: start: 20090628

REACTIONS (2)
  - HALLUCINATION [None]
  - SOMNOLENCE [None]
